FAERS Safety Report 11746752 (Version 1)
Quarter: 2015Q4

REPORT INFORMATION
  Report Type: Spontaneous
  Country: KR (occurrence: KR)
  Receive Date: 20151117
  Receipt Date: 20151117
  Transmission Date: 20160304
  Serious: Yes (Death, Other)
  Sender: FDA-Public Use
  Company Number: KR-GLAXOSMITHKLINE-KR2014GSK054927

PATIENT
  Age: 48 Year
  Sex: Female

DRUGS (1)
  1. MELPHALAN [Suspect]
     Active Substance: MELPHALAN
     Indication: POEMS SYNDROME
     Dosage: 200 MG/M2, UNK

REACTIONS (2)
  - Off label use [Unknown]
  - Pneumonia [Fatal]
